FAERS Safety Report 5577023-2 (Version None)
Quarter: 2007Q4

REPORT INFORMATION
  Report Type: 
  Country: None (occurrence: None)
  Receive Date: 20071228
  Receipt Date: 20071206
  Transmission Date: 20080405
  Serious: No
  Sender: FDA-Public Use
  Company Number: US-BOEHRINGER INGELHEIM PHARMACEUTICALS, INC.-2007-BP-25732BP

PATIENT
  Sex: Female

DRUGS (1)
  1. COMBIVENT [Suspect]
     Route: 055

REACTIONS (1)
  - DYSGEUSIA [None]
